FAERS Safety Report 8934367 (Version 1)
Quarter: 2012Q4

REPORT INFORMATION
  Report Type: 
  Country: VE (occurrence: VE)
  Receive Date: 20121129
  Receipt Date: 20121129
  Transmission Date: 20130627
  Serious: Yes (Hospitalization, Other)
  Sender: FDA-Public Use
  Company Number: VE-ABBOTT-12P-178-1014115-00

PATIENT
  Age: 40 None
  Weight: 71 kg

DRUGS (1)
  1. HUMIRA [Suspect]
     Indication: PSORIATIC ARTHROPATHY
     Route: 058
     Dates: start: 20100602, end: 201007

REACTIONS (4)
  - Leukocytosis [Recovering/Resolving]
  - No therapeutic response [Unknown]
  - Vomiting [Recovered/Resolved]
  - Headache [Recovered/Resolved]
